FAERS Safety Report 12321813 (Version 1)
Quarter: 2016Q2

REPORT INFORMATION
  Report Type: Spontaneous
  Country: US (occurrence: None)
  Receive Date: 20160429
  Receipt Date: 20160429
  Transmission Date: 20160815
  Serious: Yes (Other)
  Sender: FDA-Public Use
  Company Number: None

PATIENT
  Age: 61 Year
  Sex: Female
  Weight: 72.58 kg

DRUGS (6)
  1. POLETHYLIN  GLYCOL [Concomitant]
  2. VESICARE [Suspect]
     Active Substance: SOLIFENACIN SUCCINATE
     Indication: CYSTITIS INTERSTITIAL
     Route: 048
     Dates: start: 20160409, end: 20160412
  3. MULTIVITAMIN [Concomitant]
     Active Substance: VITAMINS
  4. LUTIEN [Concomitant]
  5. VESICARE [Suspect]
     Active Substance: SOLIFENACIN SUCCINATE
     Indication: HYPERTONIC BLADDER
     Route: 048
     Dates: start: 20160409, end: 20160412
  6. RIOTEN [Concomitant]

REACTIONS (5)
  - Myalgia [None]
  - Discomfort [None]
  - Paraesthesia [None]
  - Pain [None]
  - Arthralgia [None]

NARRATIVE: CASE EVENT DATE: 20160409
